FAERS Safety Report 4754183-4 (Version None)
Quarter: 2005Q3

REPORT INFORMATION
  Report Type: 
  Country: None (occurrence: None)
  Receive Date: 20050825
  Receipt Date: 20050728
  Transmission Date: 20060218
  Serious: Yes (Other)
  Sender: FDA-Public Use
  Company Number: 2005067479

PATIENT
  Age: 45 Year
  Sex: Male

DRUGS (2)
  1. CADUET [Suspect]
     Indication: HYPERLIPIDAEMIA
     Dosage: 5 MG / 10 MG (1 IN 1 D)
     Dates: start: 20050324, end: 20050408
  2. CADUET [Suspect]
     Indication: HYPERTENSION
     Dosage: 5 MG / 10 MG (1 IN 1 D)
     Dates: start: 20050324, end: 20050408

REACTIONS (1)
  - BLOOD CREATINE PHOSPHOKINASE INCREASED [None]
